FAERS Safety Report 10099565 (Version 1)
Quarter: 2014Q2

REPORT INFORMATION
  Report Type: Spontaneous
  Country: GB (occurrence: GB)
  Receive Date: 20140423
  Receipt Date: 20140423
  Transmission Date: 20141212
  Serious: Yes (Hospitalization)
  Sender: FDA-Public Use
  Company Number: PHHY2014GB046615

PATIENT
  Age: 28 Year
  Sex: Female

DRUGS (13)
  1. RIFAMPICIN [Suspect]
     Indication: TUBERCULOSIS
     Dates: start: 201105
  2. ISONIAZID [Suspect]
     Indication: TUBERCULOSIS
     Dates: start: 201105
  3. ETHAMBUTOL [Suspect]
     Indication: TUBERCULOSIS
     Dates: start: 201105
  4. MOXIFLOXACIN [Suspect]
     Indication: TUBERCULOSIS
  5. AMIKACIN [Suspect]
     Indication: TUBERCULOSIS
  6. STREPTOMYCIN [Suspect]
  7. CAPREOMYCIN [Suspect]
  8. KANAMYCIN [Suspect]
  9. PYRAZINAMIDE [Concomitant]
     Indication: TUBERCULOSIS
     Dates: start: 201105
  10. AZITHROMYCIN [Concomitant]
     Indication: TUBERCULOSIS
  11. PROTHIONAMIDE [Concomitant]
     Indication: TUBERCULOSIS
  12. CYCLOSERINE [Concomitant]
     Indication: TUBERCULOSIS
  13. CORTICOSTEROIDS [Concomitant]

REACTIONS (1)
  - Pathogen resistance [Unknown]
